FAERS Safety Report 14024255 (Version 1)
Quarter: 2017Q3

REPORT INFORMATION
  Report Type: Report from Study
  Country: GB (occurrence: GB)
  Receive Date: 20170929
  Receipt Date: 20170929
  Transmission Date: 20171128
  Serious: Yes (Other)
  Sender: FDA-Public Use
  Company Number: GB-JNJFOC-20170916826

PATIENT
  Age: 34 Year
  Sex: Female
  Weight: 124 kg

DRUGS (2)
  1. STELARA [Suspect]
     Active Substance: USTEKINUMAB
     Indication: PSORIASIS
     Route: 058
     Dates: start: 20170807
  2. STELARA [Suspect]
     Active Substance: USTEKINUMAB
     Indication: PSORIASIS
     Route: 058
     Dates: start: 20160111, end: 20160808

REACTIONS (2)
  - Exposure during pregnancy [Recovered/Resolved]
  - Premature labour [Recovered/Resolved]

NARRATIVE: CASE EVENT DATE: 20160815
